FAERS Safety Report 13771238 (Version 1)
Quarter: 2017Q3

REPORT INFORMATION
  Report Type: Spontaneous
  Country: US (occurrence: US)
  Receive Date: 20170720
  Receipt Date: 20170720
  Transmission Date: 20171127
  Serious: Yes (Other)
  Sender: FDA-Public Use
  Company Number: None

PATIENT
  Age: 61 Year
  Sex: Female
  Weight: 54 kg

DRUGS (9)
  1. CALCIUM [Concomitant]
     Active Substance: CALCIUM
  2. MAGNESIUM [Concomitant]
     Active Substance: MAGNESIUM
  3. CLONAZEPAM. [Concomitant]
     Active Substance: CLONAZEPAM
  4. VIMPAT [Concomitant]
     Active Substance: LACOSAMIDE
  5. FISH OIL [Concomitant]
     Active Substance: FISH OIL
  6. HYDROCODONE [Concomitant]
     Active Substance: HYDROCODONE
  7. VITAMIN D [Concomitant]
     Active Substance: CHOLECALCIFEROL
  8. ENOXAPARIN 60 MG SYR [Suspect]
     Active Substance: ENOXAPARIN SODIUM
     Indication: ABNORMAL CLOTTING FACTOR
     Dosage: ?          OTHER STRENGTH:MG;QUANTITY:36 INJECTION(S);?
     Route: 058
     Dates: start: 20170714, end: 20170716
  9. VITAMIN C [Concomitant]
     Active Substance: ASCORBIC ACID

REACTIONS (4)
  - Dyspnoea [None]
  - Pain in extremity [None]
  - Chest pain [None]
  - Back pain [None]

NARRATIVE: CASE EVENT DATE: 20170715
